FAERS Safety Report 9359493 (Version 1)
Quarter: 2013Q2

REPORT INFORMATION
  Report Type: Spontaneous
  Country: US (occurrence: US)
  Receive Date: 20130620
  Receipt Date: 20130620
  Transmission Date: 20140414
  Serious: No
  Sender: FDA-Public Use
  Company Number: US-009507513-1306USA009048

PATIENT
  Age: 54 Year
  Sex: Female

DRUGS (3)
  1. SAPHRIS [Suspect]
     Indication: BIPOLAR DISORDER
     Dosage: 5 MG TABLET RAPID DISSOLVE, QD
     Route: 048
     Dates: start: 201305, end: 2013
  2. CYMBALTA [Concomitant]
  3. LAMICTAL [Concomitant]

REACTIONS (1)
  - Dysgeusia [Recovered/Resolved]
